FAERS Safety Report 8551809 (Version 3)
Quarter: 2013Q4

REPORT INFORMATION
  Report Type: Spontaneous
  Country: US (occurrence: US)
  Receive Date: 20120508
  Receipt Date: 20131022
  Transmission Date: 20140711
  Serious: Yes (Life-Threatening, Hospitalization)
  Sender: FDA-Public Use
  Company Number: US-BAYER-2012-043476

PATIENT
  Age: 49 Year
  Sex: Female

DRUGS (6)
  1. YAZ [Suspect]
  2. YASMIN [Suspect]
     Indication: ENDOMETRIOSIS
  3. OCELLA [Suspect]
  4. AMOXICILLIN [Concomitant]
     Dosage: 500 MG, TID
  5. FLUTICASONE PROPIONATE [Concomitant]
     Dosage: 50 ?G/ACTUATION, 1 SPARY EACH SIDE 2 TIMES
  6. ACETAZOLAMIDE [Concomitant]
     Dosage: 50 MG, QD

REACTIONS (6)
  - Deep vein thrombosis [None]
  - Injury [None]
  - Pain [None]
  - General physical health deterioration [None]
  - Anxiety [None]
  - Anhedonia [None]
